FAERS Safety Report 17652093 (Version 1)
Quarter: 2020Q2

REPORT INFORMATION
  Report Type: Spontaneous
  Country: GB (occurrence: GB)
  Receive Date: 20200409
  Receipt Date: 20200409
  Transmission Date: 20200713
  Serious: Yes (Hospitalization)
  Sender: FDA-Public Use
  Company Number: GB-TEVA-2020-GB-1221522

PATIENT
  Age: 89 Year
  Sex: Female

DRUGS (11)
  1. CALCIUM AND COLECALCIFEROL [Concomitant]
     Dosage: 1 DOSAGE FORMS
     Route: 048
  2. SALBUTAMOL [Concomitant]
     Active Substance: ALBUTEROL
     Dosage: 1-2 PUFFS
     Route: 048
  3. CODEINE [Concomitant]
     Active Substance: CODEINE
     Dosage: 1-2. AS NECESSARY
     Route: 048
  4. ISOSORBIDE MONONITRATE. [Concomitant]
     Active Substance: ISOSORBIDE MONONITRATE
     Dosage: 120 MG
     Route: 048
  5. OMEPRAZOLE. [Concomitant]
     Active Substance: OMEPRAZOLE
     Dosage: 40 MG
     Route: 048
  6. ACETYLSALICYLIC ACID [Concomitant]
     Active Substance: ASPIRIN
     Dosage: 75 MG
     Route: 048
  7. CASSIA [Concomitant]
     Route: 048
  8. DILTIAZEM. [Suspect]
     Active Substance: DILTIAZEM
     Dosage: 300 MG
     Route: 048
     Dates: end: 20200101
  9. SERTRALINE [Suspect]
     Active Substance: SERTRALINE HYDROCHLORIDE
     Dosage: 50 MG
     Dates: end: 20200101
  10. ISPAGHULA [Concomitant]
     Active Substance: PLANTAGO OVATA SEED
     Route: 048
  11. LEVOTHYROXINE. [Concomitant]
     Active Substance: LEVOTHYROXINE
     Dosage: 50 MICROGRAM
     Route: 048

REACTIONS (4)
  - Syncope [Recovered/Resolved]
  - Electrocardiogram QT prolonged [Unknown]
  - Bundle branch block left [Unknown]
  - Bradycardia [Recovered/Resolved]

NARRATIVE: CASE EVENT DATE: 20191231
